FAERS Safety Report 12084690 (Version 1)
Quarter: 2016Q1

REPORT INFORMATION
  Report Type: Spontaneous
  Country: US (occurrence: US)
  Receive Date: 20160217
  Receipt Date: 20160217
  Transmission Date: 20160526
  Serious: No
  Sender: FDA-Public Use
  Company Number: GXBR2015US001386

PATIENT
  Sex: Male

DRUGS (2)
  1. IMIQUIMOD. [Suspect]
     Active Substance: IMIQUIMOD
     Dosage: 1 DF, QD
     Route: 061
     Dates: start: 20150518, end: 201506
  2. IMIQUIMOD. [Suspect]
     Active Substance: IMIQUIMOD
     Indication: PRECANCEROUS SKIN LESION
     Dosage: 1 DF, QD
     Route: 061
     Dates: start: 201503, end: 201505

REACTIONS (4)
  - Scab [Recovered/Resolved]
  - Intentional product misuse [Recovered/Resolved]
  - Erythema [Recovered/Resolved]
  - Scar [Not Recovered/Not Resolved]

NARRATIVE: CASE EVENT DATE: 20150518
